FAERS Safety Report 24141779 (Version 1)
Quarter: 2024Q3

REPORT INFORMATION
  Report Type: Spontaneous
  Country: FR (occurrence: FR)
  Receive Date: 20240726
  Receipt Date: 20240726
  Transmission Date: 20241017
  Serious: Yes (Other)
  Sender: BAXTER
  Company Number: FR-BAXTER-2024BAX022053

PATIENT

DRUGS (1)
  1. CYCLOPHOSPHAMIDE [Suspect]
     Active Substance: CYCLOPHOSPHAMIDE
     Dosage: UNK
     Route: 065

REACTIONS (5)
  - Respiratory disorder [Unknown]
  - Chest pain [Unknown]
  - Product barcode issue [Unknown]
  - Product label issue [Unknown]
  - Product dispensing error [Unknown]
